FAERS Safety Report 9438690 (Version 4)
Quarter: 2013Q4

REPORT INFORMATION
  Report Type: Spontaneous
  Country: US (occurrence: US)
  Receive Date: 20130802
  Receipt Date: 20131010
  Transmission Date: 20140711
  Serious: Yes (Other)
  Sender: FDA-Public Use
  Company Number: US-PFIZER INC-2013223027

PATIENT
  Age: 61 Year
  Sex: Female

DRUGS (7)
  1. CELEBREX [Suspect]
     Dosage: 200 MG, 1X/DAY
     Route: 048
  2. NORVASC [Concomitant]
     Dosage: UNK
  3. BYSTOLIC [Concomitant]
     Dosage: 5 MG, 1X/DAY
     Route: 048
  4. NEXIUM [Concomitant]
     Dosage: 40 MG, 1X/DAY
     Route: 048
  5. VITAMIN D [Concomitant]
     Dosage: UNK
  6. AMLODIPINE [Concomitant]
     Dosage: 5 MG, 1X/DAY
     Route: 048
  7. ULTRAM [Concomitant]
     Dosage: 50 MG, 1X/DAY [QHS]
     Route: 048

REACTIONS (2)
  - Arthropathy [Unknown]
  - Pain [Unknown]
